FAERS Safety Report 16727659 (Version 2)
Quarter: 2019Q3

REPORT INFORMATION
  Report Type: Spontaneous
  Country: US (occurrence: US)
  Receive Date: 20190822
  Receipt Date: 20190828
  Transmission Date: 20191005
  Serious: No
  Sender: FDA-Public Use
  Company Number: US-AMGEN-USASP2019131279

PATIENT

DRUGS (3)
  1. FASLODEX [Concomitant]
     Active Substance: FULVESTRANT
     Dosage: UNK
  2. XGEVA [Suspect]
     Active Substance: DENOSUMAB
     Indication: PRODUCT USED FOR UNKNOWN INDICATION
     Dosage: UNK
     Route: 065
  3. IBRANCE [Suspect]
     Active Substance: PALBOCICLIB
     Indication: BREAST CANCER
     Dosage: 75 MILLIGRAM, QD
     Route: 048
     Dates: start: 20190710

REACTIONS (19)
  - Muscle spasms [Unknown]
  - Alopecia [Unknown]
  - Dry mouth [Unknown]
  - Paraesthesia [Unknown]
  - Pain [Unknown]
  - Back pain [Unknown]
  - Asthenia [Unknown]
  - Dyspepsia [Unknown]
  - Musculoskeletal chest pain [Not Recovered/Not Resolved]
  - Dyspnoea [Unknown]
  - Blood count abnormal [Unknown]
  - Cough [Unknown]
  - Constipation [Unknown]
  - Oral pain [Unknown]
  - Abdominal pain upper [Unknown]
  - Dry throat [Unknown]
  - Hypoaesthesia [Unknown]
  - Tumour marker decreased [Unknown]
  - Fatigue [Unknown]

NARRATIVE: CASE EVENT DATE: 20190730
